FAERS Safety Report 7956389-X (Version None)
Quarter: 2011Q4

REPORT INFORMATION
  Report Type: 
  Country: None (occurrence: None)
  Receive Date: 20111205
  Receipt Date: 20111130
  Transmission Date: 20120403
  Serious: Yes (Other)
  Sender: FDA-Public Use
  Company Number: US-PFIZER INC-2011292657

PATIENT
  Sex: Male
  Weight: 97.1 kg

DRUGS (13)
  1. BACLOFEN [Concomitant]
     Indication: OSTEOPOROSIS
  2. ACETAMINOPHEN [Concomitant]
     Indication: PAIN
     Dosage: UNK
  3. MOTRIN [Concomitant]
     Indication: PAIN
     Dosage: UNK
  4. MOTRIN [Concomitant]
     Indication: OSTEOPOROSIS
  5. GABAPENTIN [Suspect]
     Indication: FIBROMYALGIA
     Dosage: 600 MG, 4X/DAY
     Route: 048
     Dates: start: 20070101
  6. ACETAMINOPHEN [Concomitant]
     Indication: OSTEOARTHRITIS
  7. GABAPENTIN [Suspect]
     Dosage: 600 MG, 3X/DAY
     Route: 048
  8. BACLOFEN [Concomitant]
     Indication: OSTEOARTHRITIS
  9. BACLOFEN [Concomitant]
     Indication: PAIN
     Dosage: UNK
  10. MOTRIN [Concomitant]
     Indication: OSTEOARTHRITIS
  11. ACETAMINOPHEN [Concomitant]
     Indication: OSTEOPOROSIS
  12. LIPITOR [Concomitant]
     Dosage: UNK
  13. VITAMIN D [Concomitant]
     Dosage: UNK

REACTIONS (6)
  - LABORATORY TEST ABNORMAL [None]
  - MENTAL DISORDER [None]
  - DISTURBANCE IN ATTENTION [None]
  - MEMORY IMPAIRMENT [None]
  - DIZZINESS [None]
  - FEAR OF DISEASE [None]
